FAERS Safety Report 6063910-8 (Version None)
Quarter: 2009Q1

REPORT INFORMATION
  Report Type: 
  Country: None (occurrence: None)
  Receive Date: 20090130
  Receipt Date: 20090123
  Transmission Date: 20090719
  Serious: Yes (Hospitalization)
  Sender: FDA-Public Use
  Company Number: TRP_05983_2008

PATIENT
  Sex: Female

DRUGS (3)
  1. RIBASPHERE [Suspect]
     Indication: HEPATITIS C
     Dosage: 1000 MG DAILY
     Dates: start: 20080922
  2. PEGASYS (NOT SPECIFIED) [Suspect]
     Indication: HEPATITIS C
     Dosage: 180 UG 1X/WEEK
     Dates: start: 20080922
  3. INTERFERON ALFA [Suspect]
     Indication: DRUG USE FOR UNKNOWN INDICATION

REACTIONS (7)
  - ASTHENIA [None]
  - BURNING SENSATION [None]
  - INTRACRANIAL ANEURYSM [None]
  - PAIN [None]
  - PLATELET COUNT DECREASED [None]
  - SOMNOLENCE [None]
  - WHITE BLOOD CELL COUNT DECREASED [None]
